FAERS Safety Report 4818392-8 (Version None)
Quarter: 2005Q4

REPORT INFORMATION
  Report Type: 
  Country: None (occurrence: None)
  Receive Date: 20051031
  Receipt Date: 20051021
  Transmission Date: 20060501
  Serious: Yes (Death, Hospitalization)
  Sender: FDA-Public Use
  Company Number: 11892

PATIENT
  Age: 76 Year
  Sex: Male

DRUGS (3)
  1. METHOTREXATE [Suspect]
     Dosage: 10 MG WEEKLY PO
     Route: 048
  2. CYCLOSPORINE [Suspect]
     Indication: PITYRIASIS RUBRA PILARIS
     Dosage: 2.5 MG/KG DAILY PO
     Route: 048
  3. ACITRETIN [Suspect]
     Dosage: 70 MG PO
     Route: 048

REACTIONS (11)
  - ALANINE AMINOTRANSFERASE INCREASED [None]
  - BILIARY DILATATION [None]
  - BLOOD ALKALINE PHOSPHATASE INCREASED [None]
  - BLOOD BILIRUBIN INCREASED [None]
  - CHOLELITHIASIS [None]
  - HEPATOTOXICITY [None]
  - LIVER FUNCTION TEST ABNORMAL [None]
  - METASTASES TO BONE [None]
  - RENAL CELL CARCINOMA STAGE UNSPECIFIED [None]
  - SKIN BURNING SENSATION [None]
  - TREMOR [None]
